FAERS Safety Report 8904623 (Version 4)
Quarter: 2013Q4

REPORT INFORMATION
  Report Type: Spontaneous
  Country: US (occurrence: US)
  Receive Date: 20121112
  Receipt Date: 20131011
  Transmission Date: 20140711
  Serious: Yes (Hospitalization, Other)
  Sender: FDA-Public Use
  Company Number: US-009507513-1211USA004462

PATIENT
  Sex: Female
  Weight: 76.19 kg

DRUGS (4)
  1. FOSAMAX [Suspect]
     Indication: OSTEOPOROSIS
     Dosage: 70 MG, QW
     Route: 048
     Dates: start: 200212, end: 2007
  2. ALENDRONATE SODIUM [Suspect]
     Indication: OSTEOPOROSIS
     Dosage: 70 MG, QW
     Route: 048
     Dates: start: 200810, end: 201011
  3. BONIVA [Concomitant]
     Indication: OSTEOPOROSIS
     Dosage: 150 MG, QM
     Route: 048
     Dates: start: 2007, end: 200810
  4. CALTRATE (CALCIUM CARBONATE) [Concomitant]
     Dosage: 1 DF, QD
     Dates: start: 2002

REACTIONS (17)
  - Femur fracture [Recovering/Resolving]
  - Intramedullary rod insertion [Unknown]
  - Joint dislocation [Unknown]
  - Rotator cuff syndrome [Unknown]
  - Joint dislocation reduction [Unknown]
  - Hypercholesterolaemia [Unknown]
  - Anxiety [Unknown]
  - Infection [Unknown]
  - Osteopenia [Unknown]
  - Mitral valve prolapse [Unknown]
  - Osteoarthritis [Unknown]
  - Iron deficiency anaemia [Unknown]
  - Cardiac disorder [Unknown]
  - Thyroid disorder [Unknown]
  - Tonsillectomy [Unknown]
  - Osteoarthritis [Unknown]
  - Gastrooesophageal reflux disease [Unknown]
